FAERS Safety Report 5447136-4 (Version None)
Quarter: 2007Q3

REPORT INFORMATION
  Report Type: 
  Country: None (occurrence: None)
  Receive Date: 20070910
  Receipt Date: 20070822
  Transmission Date: 20080115
  Serious: Yes (Disabling)
  Sender: FDA-Public Use
  Company Number: DK-DENTSPLY-E2B_00000004

PATIENT
  Sex: Male

DRUGS (2)
  1. XYLOPLYIN DENTAL ADRENALIN [Suspect]
     Route: 030
     Dates: start: 20070620, end: 20070620
  2. SEPTANEST [Concomitant]
     Route: 030
     Dates: start: 20070620, end: 20070620

REACTIONS (2)
  - AGEUSIA [None]
  - HYPOAESTHESIA ORAL [None]
